FAERS Safety Report 8134501-X (Version None)
Quarter: 2012Q1

REPORT INFORMATION
  Report Type: 
  Country: None (occurrence: None)
  Receive Date: 20120214
  Receipt Date: 20120209
  Transmission Date: 20120608
  Serious: No
  Sender: FDA-Public Use
  Company Number: US-PFIZER INC-2012035111

PATIENT
  Sex: Male

DRUGS (1)
  1. VIAGRA [Suspect]
     Indication: ERECTILE DYSFUNCTION
     Dosage: 40000 MG, AS NEEDED
     Dates: start: 20110101

REACTIONS (2)
  - TESTICULAR SWELLING [None]
  - DRUG ADMINISTRATION ERROR [None]
